FAERS Safety Report 9702828 (Version 2)
Quarter: 2013Q4

REPORT INFORMATION
  Report Type: Spontaneous
  Country: IT (occurrence: IT)
  Receive Date: 20131121
  Receipt Date: 20131122
  Transmission Date: 20140711
  Serious: Yes (Other)
  Sender: FDA-Public Use
  Company Number: IT-GLAXOSMITHKLINE-B0946627A

PATIENT
  Age: 80 Year
  Sex: Female
  Weight: 61 kg

DRUGS (15)
  1. ALKERAN [Suspect]
     Indication: PLASMA CELL MYELOMA
     Dosage: 16MG CYCLIC
     Route: 042
     Dates: start: 20130430, end: 20131111
  2. VELCADE [Suspect]
     Indication: PLASMA CELL MYELOMA
     Dosage: 1.6MG CYCLIC
     Route: 042
     Dates: start: 20130430, end: 20131111
  3. PREDNISONE [Suspect]
     Indication: PLASMA CELL MYELOMA
     Dosage: 50MG CYCLIC
     Route: 065
     Dates: start: 20130430, end: 20131111
  4. ZITROMAX [Concomitant]
     Dosage: 500MG PER DAY
     Dates: start: 20131028, end: 20131102
  5. CARDIOASPIRIN [Concomitant]
     Dosage: 100MG PER DAY
     Dates: start: 20130826, end: 20131111
  6. KCL RETARD [Concomitant]
     Dosage: 600MG PER DAY
     Route: 048
     Dates: start: 20131028, end: 20131111
  7. ZYLORIC [Concomitant]
     Dosage: 300MG PER DAY
     Route: 048
     Dates: start: 20120101, end: 20131111
  8. BENADON [Concomitant]
     Dosage: 300MG PER DAY
     Route: 048
     Dates: start: 20120101, end: 20131111
  9. FOLINA [Concomitant]
     Dosage: 5MG PER DAY
     Route: 048
     Dates: start: 20120101, end: 20131111
  10. VITAMIN B COMPLEX [Concomitant]
     Dosage: 1TAB PER DAY
     Route: 048
     Dates: start: 20120101, end: 20131111
  11. LYRICA [Concomitant]
     Dosage: 150MG PER DAY
     Route: 048
     Dates: start: 20130909, end: 20131111
  12. PAMIDRONIC ACID [Concomitant]
     Dosage: 60MG PER DAY
     Route: 042
     Dates: start: 20130902, end: 20130902
  13. SOTALOL [Concomitant]
     Dosage: 120MG PER DAY
     Route: 048
     Dates: start: 20130710, end: 20131111
  14. PANTOPRAZOLE [Concomitant]
     Dosage: 20MG PER DAY
     Route: 048
     Dates: start: 20120101, end: 20131111
  15. ACICLOVIR [Concomitant]
     Dosage: 800MG PER DAY
     Route: 048
     Dates: start: 20120101, end: 20131101

REACTIONS (2)
  - Pain [Not Recovered/Not Resolved]
  - Allodynia [Not Recovered/Not Resolved]
